FAERS Safety Report 25133529 (Version 1)
Quarter: 2025Q1

REPORT INFORMATION
  Report Type: Spontaneous
  Country: PL (occurrence: PL)
  Receive Date: 20250328
  Receipt Date: 20250328
  Transmission Date: 20250409
  Serious: Yes (Death, Life-Threatening, Hospitalization, Other)
  Sender: ACCORD
  Company Number: PL-EMA-DD-20250219-7482643-101355

PATIENT
  Age: 40 Year
  Sex: Male

DRUGS (13)
  1. FUROSEMIDE [Suspect]
     Active Substance: FUROSEMIDE
     Indication: Anuria
  2. FILGRASTIM [Suspect]
     Active Substance: FILGRASTIM
     Indication: Product used for unknown indication
  3. ALLOPURINOL [Suspect]
     Active Substance: ALLOPURINOL
     Indication: Anuria
  4. BEXAROTENE [Suspect]
     Active Substance: BEXAROTENE
     Indication: Product used for unknown indication
  5. CALCIUM CARBONATE [Suspect]
     Active Substance: CALCIUM CARBONATE
     Indication: Anuria
  6. MEROPENEM [Suspect]
     Active Substance: MEROPENEM
     Indication: Anuria
  7. MORPHINE [Suspect]
     Active Substance: MORPHINE
     Indication: Anuria
  8. PEGINTERFERON ALFA-2A [Suspect]
     Active Substance: PEGINTERFERON ALFA-2A
     Indication: Cutaneous T-cell lymphoma stage I
  9. PIPERACILLIN AND TAZOBACTAM [Suspect]
     Active Substance: PIPERACILLIN SODIUM\TAZOBACTAM SODIUM
     Indication: Anuria
  10. RASBURICASE [Suspect]
     Active Substance: RASBURICASE
     Indication: Anuria
  11. TRAMADOL [Suspect]
     Active Substance: TRAMADOL
     Indication: Anuria
  12. VANCOMYCIN [Suspect]
     Active Substance: VANCOMYCIN
     Indication: Anuria
  13. FILGRASTIM [Suspect]
     Active Substance: FILGRASTIM
     Indication: Pancytopenia

REACTIONS (3)
  - Cutaneous T-cell lymphoma stage I [Recovered/Resolved]
  - Disease progression [Fatal]
  - Multiple organ dysfunction syndrome [Fatal]
